FAERS Safety Report 19801720 (Version 1)
Quarter: 2021Q3

REPORT INFORMATION
  Report Type: Spontaneous
  Country: US (occurrence: US)
  Receive Date: 20210907
  Receipt Date: 20210907
  Transmission Date: 20211014
  Serious: Yes (Other)
  Sender: FDA-Public Use
  Company Number: US-UNICHEM PHARMACEUTICALS (USA) INC-UCM202108-000775

PATIENT
  Age: 71 Year
  Sex: Female

DRUGS (1)
  1. HYDROCHLOROTHIAZIDE. [Suspect]
     Active Substance: HYDROCHLOROTHIAZIDE
     Indication: BLOOD PRESSURE ABNORMAL
     Dates: start: 2017

REACTIONS (13)
  - Weight decreased [Unknown]
  - Weight increased [Unknown]
  - Osteopenia [Unknown]
  - Cerebral atrophy [Unknown]
  - Atrial fibrillation [Unknown]
  - Osteoporosis [Unknown]
  - Dehydration [Unknown]
  - Hypotonia [Unknown]
  - Anxiety [Unknown]
  - Claustrophobia [Unknown]
  - Blood pressure decreased [Unknown]
  - Cerebrovascular accident [Unknown]
  - Aphasia [Unknown]

NARRATIVE: CASE EVENT DATE: 20210219
